FAERS Safety Report 5142857-5 (Version None)
Quarter: 2006Q4

REPORT INFORMATION
  Report Type: 
  Country: None (occurrence: None)
  Receive Date: 20061102
  Receipt Date: 20061023
  Transmission Date: 20070319
  Serious: Yes (Hospitalization)
  Sender: FDA-Public Use
  Company Number: US-ABBOTT-06P-163-0347808-00

PATIENT
  Sex: Female
  Weight: 40.86 kg

DRUGS (11)
  1. HUMIRA [Suspect]
     Indication: RHEUMATOID ARTHRITIS
     Route: 058
     Dates: start: 20060201, end: 20060801
  2. HUMIRA [Suspect]
     Route: 058
     Dates: start: 20060901, end: 20060901
  3. HUMIRA [Suspect]
     Route: 058
     Dates: start: 20061022
  4. PANTOPRAZOLE SODIUM [Concomitant]
     Indication: STOMACH DISCOMFORT
     Route: 048
  5. METHOTREXATE [Concomitant]
     Indication: ARTHRITIS
     Route: 048
  6. VICODIN [Concomitant]
     Indication: PAIN
     Route: 048
  7. HYDROXYCHLOROQUINE SULFATE [Concomitant]
     Indication: DRUG USE FOR UNKNOWN INDICATION
     Route: 048
  8. FOLIC ACID [Concomitant]
     Indication: ARTHRITIS
     Route: 048
  9. LYSINE [Concomitant]
     Indication: ARTHRITIS
     Route: 048
  10. RISEDRONATE SODIUM [Concomitant]
     Indication: OSTEOPOROSIS
     Route: 048
  11. SERETIDE MITE [Concomitant]
     Indication: DRUG USE FOR UNKNOWN INDICATION
     Route: 055

REACTIONS (3)
  - FALL [None]
  - HIP FRACTURE [None]
  - SKIN LACERATION [None]
